FAERS Safety Report 7769451-1 (Version None)
Quarter: 2011Q3

REPORT INFORMATION
  Report Type: 
  Country: None (occurrence: None)
  Receive Date: 20110922
  Receipt Date: 20101201
  Transmission Date: 20111222
  Serious: No
  Sender: FDA-Public Use
  Company Number: US-ASTRAZENECA-2010SE57124

PATIENT
  Age: 61 Year
  Sex: Female

DRUGS (6)
  1. SEROQUEL XR [Suspect]
     Route: 048
     Dates: start: 20080101
  2. LOVASTATIN [Concomitant]
  3. SEROQUEL XR [Suspect]
     Indication: BIPOLAR DISORDER
     Route: 048
     Dates: start: 20060101, end: 20080101
  4. LOSARTEN [Concomitant]
  5. LORAZEPAM [Concomitant]
  6. FENOFIBRATE [Concomitant]

REACTIONS (4)
  - COLD SWEAT [None]
  - GASTRIC DISORDER [None]
  - TREMOR [None]
  - DRUG DOSE OMISSION [None]
